FAERS Safety Report 25776680 (Version 1)
Quarter: 2025Q3

REPORT INFORMATION
  Report Type: Spontaneous
  Country: US (occurrence: US)
  Receive Date: 20250909
  Receipt Date: 20250909
  Transmission Date: 20251021
  Serious: No
  Sender: DOMPE FARMACEUTICI
  Company Number: US-FARMAPROD-202409-3170

PATIENT
  Sex: Female

DRUGS (26)
  1. OXERVATE [Suspect]
     Active Substance: CENEGERMIN-BKBJ
     Indication: Neurotrophic keratopathy
     Route: 047
     Dates: start: 20240827
  2. OXERVATE [Suspect]
     Active Substance: CENEGERMIN-BKBJ
  3. BIOTIN [Concomitant]
     Active Substance: BIOTIN
  4. SENNA-S [Concomitant]
     Active Substance: DOCUSATE SODIUM\SENNOSIDES
  5. FLAXSEED [Concomitant]
     Active Substance: FLAX SEED
  6. VITAMIN D3-VITAMIN K2 [Concomitant]
  7. ROSUVASTATIN CALCIUM [Concomitant]
     Active Substance: ROSUVASTATIN CALCIUM
  8. ONDANSETRON HYDROCHLORIDE [Concomitant]
     Active Substance: ONDANSETRON HYDROCHLORIDE
  9. TRAZODONE HYDROCHLORIDE [Concomitant]
     Active Substance: TRAZODONE HYDROCHLORIDE
  10. CYCLOBENZAPRINE HYDROCHLORIDE [Concomitant]
     Active Substance: CYCLOBENZAPRINE HYDROCHLORIDE
  11. HYDROCODONE BITARTRATE AND ACETAMINOPHEN [Concomitant]
     Active Substance: ACETAMINOPHEN\HYDROCODONE BITARTRATE
  12. HUMULIN 70/30 [Concomitant]
     Active Substance: INSULIN HUMAN
  13. LOSARTAN POTASSIUM [Concomitant]
     Active Substance: LOSARTAN POTASSIUM
  14. POLYMYXIN B SUL-TRIMETHOPRIM [Concomitant]
  15. PRED FORTE [Concomitant]
     Active Substance: PREDNISOLONE ACETATE
  16. OFLOXACIN [Concomitant]
     Active Substance: OFLOXACIN
  17. VITAMIN B12 [Concomitant]
     Active Substance: CYANOCOBALAMIN
  18. MULTIVITAMIN 50 PLUS [Concomitant]
  19. REFRESH DIGITAL PF [Concomitant]
     Active Substance: CARBOXYMETHYLCELLULOSE SODIUM\GLYCERIN\POLYSORBATE 80
  20. ASPIRIN [Concomitant]
     Active Substance: ASPIRIN
  21. DULOXETINE HYDROCHLORIDE [Concomitant]
     Active Substance: DULOXETINE HYDROCHLORIDE
  22. ATENOLOL\CHLORTHALIDONE [Concomitant]
     Active Substance: ATENOLOL\CHLORTHALIDONE
  23. PREGABALIN [Concomitant]
     Active Substance: PREGABALIN
  24. METFORMIN HYDROCHLORIDE [Concomitant]
     Active Substance: METFORMIN HYDROCHLORIDE
  25. FENTANYL [Concomitant]
     Active Substance: FENTANYL
  26. CALCIUM+MAGNESIUM+ZINC [Concomitant]

REACTIONS (7)
  - Eye pain [Unknown]
  - Photophobia [Unknown]
  - Wrong technique in product usage process [Unknown]
  - Product dose omission issue [Unknown]
  - Off label use [Unknown]
  - Ear pain [Unknown]
  - Therapy interrupted [Unknown]
